FAERS Safety Report 23332514 (Version 2)
Quarter: 2024Q1

REPORT INFORMATION
  Report Type: Spontaneous
  Country: CA (occurrence: CA)
  Receive Date: 20231222
  Receipt Date: 20240103
  Transmission Date: 20240410
  Serious: Yes (Other)
  Sender: FDA-Public Use
  Company Number: CA-PFIZER INC-202300252730

PATIENT
  Age: 57 Year
  Sex: Female
  Weight: 68.04 kg

DRUGS (5)
  1. RUXIENCE [Suspect]
     Active Substance: RITUXIMAB-PVVR
     Indication: Granulomatosis with polyangiitis
     Dosage: 656 MG, WEEKLY, 4 WEEKS THEN 500 MG EVERY 6 MONTHS (RECEIVED 1000 MG, FIRST DOSE)
     Route: 042
     Dates: start: 20230927
  2. RUXIENCE [Suspect]
     Active Substance: RITUXIMAB-PVVR
     Dosage: 656 MG, WEEKLY, 4 WEEKS THEN 500 MG EVERY 6 MONTHS (RECEIVED 1000 MG, FIRST DOSE)
     Route: 042
     Dates: start: 20230927
  3. RUXIENCE [Suspect]
     Active Substance: RITUXIMAB-PVVR
     Dosage: 656 MG, 1X/DAY (DOSE: 656MG AFTER 10 WKS AND 1 DAY)
     Route: 042
     Dates: start: 20231207
  4. RUXIENCE [Suspect]
     Active Substance: RITUXIMAB-PVVR
     Dosage: 656 MG, 1X/DAY, 4 WEEKS THEN 500 MG EVERY 6 MONTHS (1000MG AT WEEK 2)
     Route: 042
     Dates: start: 20231214
  5. RUXIENCE [Suspect]
     Active Substance: RITUXIMAB-PVVR
     Dosage: 656 MG, 1X/DAY, 4 WEEKS THEN 500 MG EVERY 6 MONTHS (1 WEEK)
     Route: 042
     Dates: start: 20231221

REACTIONS (8)
  - Weight decreased [Unknown]
  - Bacterial vaginosis [Not Recovered/Not Resolved]
  - Dyspnoea [Not Recovered/Not Resolved]
  - Weight increased [Unknown]
  - Incorrect dose administered [Unknown]
  - Off label use [Unknown]
  - Intentional product use issue [Unknown]
  - Off label use [Unknown]

NARRATIVE: CASE EVENT DATE: 20230101
